FAERS Safety Report 6573657-7 (Version None)
Quarter: 2010Q1

REPORT INFORMATION
  Report Type: 
  Country: None (occurrence: None)
  Receive Date: 20100208
  Receipt Date: 20100202
  Transmission Date: 20100710
  Serious: Yes (Other)
  Sender: FDA-Public Use
  Company Number: US-RB-001521-10

PATIENT
  Age: 48 Year
  Sex: Female

DRUGS (4)
  1. SUBOXONE [Suspect]
     Route: 060
     Dates: start: 20091001, end: 20091201
  2. SUBOXONE [Suspect]
     Route: 060
     Dates: start: 20091201, end: 20100101
  3. SUBOXONE [Suspect]
     Route: 060
     Dates: start: 20100101
  4. KLONOPIN [Concomitant]
     Indication: ANXIETY
     Route: 065
     Dates: start: 20100101

REACTIONS (7)
  - ANAESTHETIC COMPLICATION [None]
  - ANXIETY [None]
  - CONVULSION [None]
  - DRUG DEPENDENCE [None]
  - FEAR [None]
  - TOOTH DISORDER [None]
  - WEIGHT INCREASED [None]
